FAERS Safety Report 7472702-4 (Version None)
Quarter: 2011Q1

REPORT INFORMATION
  Report Type: 
  Country: None (occurrence: None)
  Receive Date: 20110302
  Receipt Date: 20100930
  Transmission Date: 20110831
  Serious: Yes (Hospitalization, Other)
  Sender: FDA-Public Use
  Company Number: 163-21880-10070091

PATIENT
  Age: 71 Year
  Sex: Female

DRUGS (9)
  1. VELCADE [Concomitant]
  2. CYTOXAN [Concomitant]
  3. DEXAMETHASONE [Concomitant]
  4. REVLIMID [Suspect]
     Indication: MULTIPLE MYELOMA
     Dosage: SEE IMAGE
     Route: 048
     Dates: start: 20091001
  5. REVLIMID [Suspect]
     Indication: MULTIPLE MYELOMA
     Dosage: SEE IMAGE
     Route: 048
     Dates: start: 20070213
  6. REVLIMID [Suspect]
     Indication: MULTIPLE MYELOMA
     Dosage: SEE IMAGE
     Route: 048
     Dates: start: 20080501
  7. REVLIMID [Suspect]
     Indication: MULTIPLE MYELOMA
     Dosage: SEE IMAGE
     Route: 048
     Dates: start: 20090901
  8. REVLIMID [Suspect]
     Indication: MULTIPLE MYELOMA
     Dosage: SEE IMAGE
     Route: 048
     Dates: start: 20070601
  9. REVLIMID [Suspect]
     Indication: MULTIPLE MYELOMA
     Dosage: SEE IMAGE
     Route: 048
     Dates: start: 20061101

REACTIONS (10)
  - SINUSITIS [None]
  - NEUROPATHY PERIPHERAL [None]
  - HUMERUS FRACTURE [None]
  - MULTIPLE MYELOMA [None]
  - PATHOLOGICAL FRACTURE [None]
  - INFECTION [None]
  - PNEUMONIA [None]
  - PANCYTOPENIA [None]
  - ANAEMIA [None]
  - DISEASE PROGRESSION [None]
